FAERS Safety Report 9861755 (Version 2)
Quarter: 2014Q2

REPORT INFORMATION
  Report Type: Spontaneous
  Country: None (occurrence: GB)
  Receive Date: 20140203
  Receipt Date: 20140403
  Transmission Date: 20141212
  Serious: Yes (Hospitalization, Other)
  Sender: FDA-Public Use
  Company Number: GB-ACCORD-021545

PATIENT
  Age: 47 Year
  Sex: Female
  Weight: 55 kg

DRUGS (4)
  1. FLUOROURACIL [Suspect]
     Indication: INVASIVE DUCTAL BREAST CARCINOMA
     Dosage: 800 MG, QD
     Route: 042
     Dates: start: 20131231
  2. EPIRUBICIN [Suspect]
     Indication: INVASIVE DUCTAL BREAST CARCINOMA
     Dosage: 160 MG, QD
     Route: 042
     Dates: start: 20131231
  3. NEULASTA [Suspect]
     Indication: PROPHYLAXIS
     Dosage: 6 MG, ONCE,
     Route: 058
     Dates: start: 20140101
  4. CYCLOPHOSPHAMIDE/CYCLOPHOSPHAMIDE MONOHYDRATE [Suspect]
     Indication: INVASIVE DUCTAL BREAST CARCINOMA
     Dosage: 800 MG, QD
     Route: 042
     Dates: start: 20131231

REACTIONS (12)
  - Hemiparesis [Not Recovered/Not Resolved]
  - Lower respiratory tract infection [Unknown]
  - Carotid artery occlusion [Unknown]
  - Cerebrovascular accident [Unknown]
  - Somnolence [Unknown]
  - Neutrophil count abnormal [Unknown]
  - Haemoglobin decreased [Unknown]
  - Gastrointestinal disorder [Unknown]
  - Cerebral infarction [Not Recovered/Not Resolved]
  - Hemianopia homonymous [Not Recovered/Not Resolved]
  - Respiratory failure [Unknown]
  - White blood cell count abnormal [Unknown]
